FAERS Safety Report 19902472 (Version 1)
Quarter: 2021Q3

REPORT INFORMATION
  Report Type: Spontaneous
  Country: US (occurrence: US)
  Receive Date: 20210930
  Receipt Date: 20210930
  Transmission Date: 20211014
  Serious: No
  Sender: FDA-Public Use
  Company Number: US-SA-2021SA319237

PATIENT
  Sex: Female

DRUGS (5)
  1. DUPIXENT [Suspect]
     Active Substance: DUPILUMAB
     Indication: DERMATITIS ATOPIC
     Dosage: 200 MG, QOW
     Route: 058
  2. DUPIXENT [Suspect]
     Active Substance: DUPILUMAB
     Indication: ASTHMA
  3. DUPIXENT [Suspect]
     Active Substance: DUPILUMAB
     Indication: ILLNESS
  4. ALBUTEROL SULFATE. [Concomitant]
     Active Substance: ALBUTEROL SULFATE
     Dosage: UNK
  5. ZYRTEC?D 12HR [Concomitant]
     Dosage: UNK UNK, BID

REACTIONS (3)
  - Product dose omission issue [Unknown]
  - Asthma [Unknown]
  - Product use in unapproved indication [Unknown]
